FAERS Safety Report 7418314-X (Version None)
Quarter: 2011Q2

REPORT INFORMATION
  Report Type: 
  Country: None (occurrence: None)
  Receive Date: 20110415
  Receipt Date: 20110413
  Transmission Date: 20111010
  Serious: Yes (Hospitalization, Congenital Anomaly)
  Sender: FDA-Public Use
  Company Number: A0687246A

PATIENT
  Sex: Female
  Weight: 3.4 kg

DRUGS (4)
  1. PAXIL [Suspect]
     Indication: DEPRESSION
     Dosage: 30MG PER DAY
     Route: 064
     Dates: start: 19950101, end: 20020101
  2. IBUPROFEN [Concomitant]
     Route: 064
  3. MULTI-VITAMIN [Concomitant]
     Route: 064
     Dates: start: 19980101
  4. PRENATAL VITAMINS [Concomitant]
     Route: 064

REACTIONS (19)
  - MATERNAL DRUGS AFFECTING FOETUS [None]
  - CAROTID ARTERY OCCLUSION [None]
  - UNRESPONSIVE TO STIMULI [None]
  - CONVULSION [None]
  - MITRAL VALVE INCOMPETENCE [None]
  - CEREBROVASCULAR ACCIDENT [None]
  - CARDIAC MURMUR [None]
  - TARDIVE DYSKINESIA [None]
  - EMBOLIC STROKE [None]
  - FLUID OVERLOAD [None]
  - ATRIOVENTRICULAR BLOCK FIRST DEGREE [None]
  - TREMOR [None]
  - MUSCLE TWITCHING [None]
  - CARDIOMEGALY [None]
  - RIGHT VENTRICULAR HYPERTROPHY [None]
  - RIGHT ATRIAL DILATATION [None]
  - HEART DISEASE CONGENITAL [None]
  - DRUG EXPOSURE DURING PREGNANCY [None]
  - ATRIAL SEPTAL DEFECT [None]
